FAERS Safety Report 18114389 (Version 1)
Quarter: 2020Q3

REPORT INFORMATION
  Report Type: Spontaneous
  Country: US (occurrence: US)
  Receive Date: 20200805
  Receipt Date: 20200805
  Transmission Date: 20201103
  Serious: No
  Sender: FDA-Public Use
  Company Number: None

PATIENT
  Age: 50 Year
  Sex: Male
  Weight: 91.35 kg

DRUGS (3)
  1. DEGREE MEN MOTIONSENSE ULTRACLEAR BLACK AND WHITE 48H ANTIPERSPIRANT [Suspect]
     Active Substance: ALUMINUM ZIRCONIUM TETRACHLOROHYDREX GLY
     Indication: PERSONAL HYGIENE
     Dates: start: 20200803, end: 20200804
  2. VITAMIN C [Concomitant]
     Active Substance: ASCORBIC ACID
  3. MULTIVITAMIN [Concomitant]
     Active Substance: VITAMINS

REACTIONS (2)
  - Rash erythematous [None]
  - Application site rash [None]

NARRATIVE: CASE EVENT DATE: 20200804
